FAERS Safety Report 15484389 (Version 1)
Quarter: 2018Q4

REPORT INFORMATION
  Report Type: Spontaneous
  Country: US (occurrence: US)
  Receive Date: 20181010
  Receipt Date: 20181010
  Transmission Date: 20190205
  Serious: Yes (Other)
  Sender: FDA-Public Use
  Company Number: US-ELI_LILLY_AND_COMPANY-US201810003131

PATIENT
  Sex: Male

DRUGS (1)
  1. HUMALOG [Suspect]
     Active Substance: INSULIN LISPRO
     Indication: PRODUCT USED FOR UNKNOWN INDICATION
     Dosage: 15 U, PRN
     Route: 065

REACTIONS (5)
  - Malignant melanoma [Unknown]
  - Intentional product misuse [Unknown]
  - Immunosuppression [Unknown]
  - Pituitary cancer metastatic [Unknown]
  - Pneumonia cryptococcal [Unknown]
